FAERS Safety Report 13227788 (Version 2)
Quarter: 2017Q1

REPORT INFORMATION
  Report Type: Spontaneous
  Country: US (occurrence: US)
  Receive Date: 20170213
  Receipt Date: 20170213
  Transmission Date: 20170428
  Serious: Yes (Other)
  Sender: FDA-Public Use
  Company Number: ALCN2017US001239

PATIENT
  Age: 54 Year
  Sex: Male

DRUGS (11)
  1. BSS [Suspect]
     Active Substance: CALCIUM CHLORIDE\MAGNESIUM CHLORIDE\POTASSIUM CHLORIDE\SODIUM ACETATE\SODIUM CHLORIDE\SODIUM CITRATE
     Indication: EYE IRRIGATION
     Route: 047
  2. EPINEPHRINE. [Suspect]
     Active Substance: EPINEPHRINE
     Indication: PRODUCT USED FOR UNKNOWN INDICATION
     Route: 047
  3. TROPICAMIDE. [Suspect]
     Active Substance: TROPICAMIDE
     Indication: PREOPERATIVE CARE
     Route: 047
  4. CYCLOPENTOLATE HCL [Suspect]
     Active Substance: CYCLOPENTOLATE HYDROCHLORIDE
     Indication: PREOPERATIVE CARE
     Route: 047
  5. PHENYLEPHRINE HCL [Suspect]
     Active Substance: PHENYLEPHRINE HYDROCHLORIDE
     Indication: PREOPERATIVE CARE
     Route: 047
  6. OFLOXACIN. [Suspect]
     Active Substance: OFLOXACIN
     Indication: PREOPERATIVE CARE
     Route: 047
  7. BETADINE [Suspect]
     Active Substance: POVIDONE-IODINE
     Indication: PRODUCT USED FOR UNKNOWN INDICATION
     Route: 047
  8. KETOROLAC TROMETHAMINE. [Suspect]
     Active Substance: KETOROLAC TROMETHAMINE
     Indication: PREOPERATIVE CARE
     Route: 047
  9. PROLENSA [Suspect]
     Active Substance: BROMFENAC SODIUM
     Indication: POSTOPERATIVE CARE
     Route: 047
  10. LOTEMAX [Suspect]
     Active Substance: LOTEPREDNOL ETABONATE
     Indication: POSTOPERATIVE CARE
     Route: 047
  11. BESIVANCE [Suspect]
     Active Substance: BESIFLOXACIN
     Indication: POSTOPERATIVE CARE
     Route: 047

REACTIONS (5)
  - Visual acuity reduced [Not Recovered/Not Resolved]
  - Vitreous floaters [Not Recovered/Not Resolved]
  - Eye infection [Not Recovered/Not Resolved]
  - Non-infectious endophthalmitis [Not Recovered/Not Resolved]
  - Vitritis [Not Recovered/Not Resolved]

NARRATIVE: CASE EVENT DATE: 20170120
